FAERS Safety Report 19238772 (Version 1)
Quarter: 2021Q2

REPORT INFORMATION
  Report Type: Spontaneous
  Country: GB (occurrence: GB)
  Receive Date: 20210510
  Receipt Date: 20210510
  Transmission Date: 20210717
  Serious: Yes (Other)
  Sender: FDA-Public Use
  Company Number: GB-MYLANLABS-2021M1026718

PATIENT
  Age: 50 Year
  Sex: Female
  Weight: 86 kg

DRUGS (9)
  1. VENLAFAXINE [Suspect]
     Active Substance: VENLAFAXINE HYDROCHLORIDE
     Indication: PRODUCT USED FOR UNKNOWN INDICATION
     Dosage: TAKE ONE CAPSULE ONCE A DAY FOR TWO WEEKS, TO I
     Dates: start: 20210420
  2. OMEPRAZOLE. [Concomitant]
     Active Substance: OMEPRAZOLE
     Indication: ILL-DEFINED DISORDER
     Dosage: TO BE TAKEN TWICE DAILY
     Dates: start: 20201208
  3. QVAR [Concomitant]
     Active Substance: BECLOMETHASONE DIPROPIONATE
     Indication: ILL-DEFINED DISORDER
     Dosage: INHALE 1 DOSE TWICE DAILY
     Dates: start: 20200824
  4. SUMATRIPTAN. [Concomitant]
     Active Substance: SUMATRIPTAN
     Indication: ILL-DEFINED DISORDER
     Dosage: USE AS DIRECTED S/C AT ONSET OF MIGRAINE, CAN R...
     Dates: start: 20210302, end: 20210401
  5. DIAZEPAM. [Concomitant]
     Active Substance: DIAZEPAM
     Indication: ILL-DEFINED DISORDER
     Dosage: TAKE ONE?TWO AT NIGHT
     Dates: start: 20201117
  6. ZOLPIDEM [Concomitant]
     Active Substance: ZOLPIDEM TARTRATE
     Indication: ILL-DEFINED DISORDER
     Dosage: TAKE ONE?TWO AT NIGHT
     Dates: start: 20201117
  7. PROCHLORPERAZINE. [Concomitant]
     Active Substance: PROCHLORPERAZINE
     Indication: ILL-DEFINED DISORDER
     Dosage: TAKE 1 TO 2 TAKEN UP TO THREE TIMES A DAY FOR V.
     Dates: start: 20210326, end: 20210409
  8. VENTOLIN [Concomitant]
     Active Substance: ALBUTEROL SULFATE
     Indication: ILL-DEFINED DISORDER
     Dosage: INHALE 2 DOSES AS NEEDED
     Dates: start: 20180228
  9. WIND EZE [Concomitant]
     Dosage: TAKE ONE 3?4 TIMES/DAY IF NEEDED
     Dates: start: 20200622

REACTIONS (1)
  - Swelling face [Unknown]

NARRATIVE: CASE EVENT DATE: 20210429
